FAERS Safety Report 18230222 (Version 1)
Quarter: 2020Q3

REPORT INFORMATION
  Report Type: Spontaneous
  Country: FR (occurrence: FR)
  Receive Date: 20200903
  Receipt Date: 20200903
  Transmission Date: 20201103
  Serious: Yes (Hospitalization)
  Sender: FDA-Public Use
  Company Number: FR-VERITY PHARMACEUTICALS, INC.-2020VTY00455

PATIENT
  Age: 58 Year
  Sex: Male

DRUGS (4)
  1. TRIPTORELIN PAMOATE [Suspect]
     Active Substance: TRIPTORELIN PAMOATE
     Indication: PROSTATE CANCER
     Dosage: UNK
     Dates: start: 202003, end: 202006
  2. CYMBALTA [Concomitant]
     Active Substance: DULOXETINE HYDROCHLORIDE
     Indication: AFFECTIVE DISORDER
     Dosage: UNK
     Dates: start: 201908
  3. STRESAM [Concomitant]
     Active Substance: ETIFOXINE
     Indication: AFFECTIVE DISORDER
     Dosage: UNK
     Dates: start: 201908, end: 202007
  4. TAREG [Concomitant]
     Active Substance: VALSARTAN
     Indication: HYPERTENSION
     Dosage: UNK
     Route: 065

REACTIONS (1)
  - Drug reaction with eosinophilia and systemic symptoms [Not Recovered/Not Resolved]

NARRATIVE: CASE EVENT DATE: 20200629
